FAERS Safety Report 8277928-8 (Version None)
Quarter: 2012Q2

REPORT INFORMATION
  Report Type: 
  Country: None (occurrence: None)
  Receive Date: 20120412
  Receipt Date: 20120409
  Transmission Date: 20120825
  Serious: Yes (Hospitalization)
  Sender: FDA-Public Use
  Company Number: NL-MEDIMMUNE-MEDI-0013766

PATIENT
  Sex: Female
  Weight: 3.79 kg

DRUGS (2)
  1. SYNAGIS [Suspect]
     Route: 030
     Dates: start: 20111020, end: 20120404
  2. SYNAGIS [Suspect]
     Indication: PREMATURE BABY
     Route: 030
     Dates: start: 20110920, end: 20110920

REACTIONS (3)
  - RESPIRATORY ARREST [None]
  - BRADYCARDIA [None]
  - GASTROOESOPHAGEAL REFLUX DISEASE [None]
